FAERS Safety Report 24314542 (Version 1)
Quarter: 2024Q3

REPORT INFORMATION
  Report Type: Spontaneous
  Country: GB (occurrence: GB)
  Receive Date: 20240913
  Receipt Date: 20240913
  Transmission Date: 20241016
  Serious: Yes (Other)
  Sender: ACCORD
  Company Number: None

PATIENT
  Age: 56 Year
  Sex: Female
  Weight: 68 kg

DRUGS (5)
  1. TRAZODONE HYDROCHLORIDE [Suspect]
     Active Substance: TRAZODONE HYDROCHLORIDE
     Indication: Product used for unknown indication
     Dates: start: 20240726, end: 20240830
  2. ARIPIPRAZOLE [Concomitant]
     Active Substance: ARIPIPRAZOLE
     Dosage: TAKE ONE TABLET A DAY
     Dates: start: 20240816
  3. OLANZAPINE [Concomitant]
     Active Substance: OLANZAPINE
     Dosage: TAKE ONE AT NIGHT
     Dates: start: 20240816
  4. PHENERGAN [Concomitant]
     Active Substance: PROMETHAZINE HYDROCHLORIDE
     Dosage: TAKE ONE TABLET AT NIGHT
     Dates: start: 20240816
  5. MIRTAZAPINE [Concomitant]
     Active Substance: MIRTAZAPINE
     Dosage: TAKE ONE AT NIGHT
     Dates: start: 20240220, end: 20240816

REACTIONS (1)
  - Swelling face [Recovered/Resolved]
